FAERS Safety Report 9752477 (Version 1)
Quarter: 2013Q4

REPORT INFORMATION
  Report Type: Spontaneous
  Country: US (occurrence: US)
  Receive Date: 20131213
  Receipt Date: 20131213
  Transmission Date: 20140711
  Serious: Yes (Hospitalization)
  Sender: FDA-Public Use
  Company Number: US-SA-2013SA129881

PATIENT
  Sex: Female

DRUGS (2)
  1. AMBIEN [Suspect]
     Indication: SLEEP DISORDER
     Route: 065
  2. BENADRYL [Concomitant]
     Indication: SLEEP DISORDER

REACTIONS (3)
  - Adverse event [Unknown]
  - Drug administration error [Unknown]
  - Exposure during pregnancy [Unknown]
